FAERS Safety Report 25924038 (Version 1)
Quarter: 2025Q4

REPORT INFORMATION
  Report Type: Spontaneous
  Country: EU (occurrence: EU)
  Receive Date: 20251015
  Receipt Date: 20251015
  Transmission Date: 20260118
  Serious: Yes (Hospitalization, Other)
  Sender: ASTELLAS
  Company Number: EU-ASTELLAS-2025-AER-055087

PATIENT
  Age: 80 Year
  Sex: Female

DRUGS (6)
  1. XOSPATA [Suspect]
     Active Substance: GILTERITINIB
     Indication: Acute myeloid leukaemia
     Route: 065
     Dates: start: 20231223
  2. XOSPATA [Suspect]
     Active Substance: GILTERITINIB
     Route: 065
     Dates: start: 20240117, end: 202401
  3. XOSPATA [Suspect]
     Active Substance: GILTERITINIB
     Route: 065
     Dates: start: 202401
  4. XOSPATA [Suspect]
     Active Substance: GILTERITINIB
     Dosage: 5 TABLETS/DAY
     Route: 065
     Dates: start: 20240618, end: 2024
  5. XOSPATA [Suspect]
     Active Substance: GILTERITINIB
     Dosage: 3 TABLETS/DAY
     Route: 065
     Dates: start: 2024
  6. XOSPATA [Suspect]
     Active Substance: GILTERITINIB
     Dosage: 5 TABLETS/DAY
     Route: 065
     Dates: start: 20250219

REACTIONS (18)
  - Interstitial lung disease [Unknown]
  - Pneumonia [Unknown]
  - Respiratory failure [Unknown]
  - Septic shock [Unknown]
  - Enterococcal infection [Unknown]
  - Corynebacterium infection [Unknown]
  - Systemic inflammatory response syndrome [Unknown]
  - Acute myeloid leukaemia [Unknown]
  - Capillary leak syndrome [Unknown]
  - Autonomic nervous system imbalance [Recovering/Resolving]
  - Peripheral motor neuropathy [Unknown]
  - Toxicity to various agents [Unknown]
  - Oedema peripheral [Unknown]
  - Skin hyperpigmentation [Unknown]
  - Skin warm [Unknown]
  - Non-pitting oedema [Unknown]
  - Leukocytosis [Unknown]
  - Anaemia [Unknown]

NARRATIVE: CASE EVENT DATE: 20231201
